FAERS Safety Report 23054759 (Version 2)
Quarter: 2024Q2

REPORT INFORMATION
  Report Type: Report from Study
  Country: CA (occurrence: CA)
  Receive Date: 20231011
  Receipt Date: 20240503
  Transmission Date: 20240715
  Serious: Yes (Hospitalization)
  Sender: FDA-Public Use
  Company Number: CA-Vifor (International) Inc.-VIT-2023-07472

PATIENT
  Sex: Female

DRUGS (1)
  1. VELTASSA [Suspect]
     Active Substance: PATIROMER
     Indication: Product used for unknown indication
     Dosage: 1 SACHET (8.4 G) ONCE DAILY
     Route: 048

REACTIONS (4)
  - Fall [Unknown]
  - Haemorrhage [Unknown]
  - Renal impairment [Unknown]
  - Dialysis [Unknown]
